FAERS Safety Report 16131159 (Version 1)
Quarter: 2019Q1

REPORT INFORMATION
  Report Type: Report from Study
  Country: US (occurrence: US)
  Receive Date: 20190328
  Receipt Date: 20190328
  Transmission Date: 20190418
  Serious: Yes (Death, Hospitalization)
  Sender: FDA-Public Use
  Company Number: US-ACTELION-A-NJ2019-188182

PATIENT
  Age: 85 Year
  Sex: Male

DRUGS (1)
  1. TRACLEER [Suspect]
     Active Substance: BOSENTAN
     Indication: PULMONARY ARTERIAL HYPERTENSION
     Dosage: 125 MG, BID
     Route: 048
     Dates: start: 20180510, end: 20190320

REACTIONS (6)
  - Hypotension [Fatal]
  - Pulmonary arterial hypertension [Fatal]
  - Cardiac arrest [Fatal]
  - Cardiac pacemaker replacement [Unknown]
  - Hepatic enzyme increased [Unknown]
  - Fall [Unknown]

NARRATIVE: CASE EVENT DATE: 201901
